FAERS Safety Report 8304116-9 (Version None)
Quarter: 2012Q2

REPORT INFORMATION
  Report Type: 
  Country: None (occurrence: None)
  Receive Date: 20120418
  Receipt Date: 20100625
  Transmission Date: 20120825
  Serious: No
  Sender: FDA-Public Use
  Company Number: AEUSA201000238

PATIENT
  Age: 43 Year
  Sex: Female

DRUGS (8)
  1. ALBUTEROL [Concomitant]
  2. SYMBICORT [Concomitant]
  3. PROLASTIN-C [Suspect]
     Indication: ALPHA-1 ANTI-TRYPSIN DEFICIENCY
     Dosage: 4500 MG, QW, IV
     Route: 042
     Dates: start: 20100525, end: 20110101
  4. ANTIHYPERTENSIVES [Concomitant]
  5. BENADRYL [Concomitant]
  6. WELLBUTRIN [Concomitant]
  7. TYLENOL REGULAR [Concomitant]
  8. SPIRIVA [Concomitant]

REACTIONS (6)
  - CHILLS [None]
  - DYSPNOEA [None]
  - DIZZINESS [None]
  - BONE PAIN [None]
  - PYREXIA [None]
  - FEELING HOT [None]
